FAERS Safety Report 20472916 (Version 1)
Quarter: 2022Q1

REPORT INFORMATION
  Report Type: Report from Study
  Country: DK (occurrence: None)
  Receive Date: 20220215
  Receipt Date: 20220215
  Transmission Date: 20220423
  Serious: Yes (Hospitalization)
  Sender: FDA-Public Use
  Company Number: DK-ROCHE-3010228

PATIENT
  Age: 66 Year
  Sex: Female
  Weight: 65.6 kg

DRUGS (3)
  1. ATEZOLIZUMAB [Suspect]
     Active Substance: ATEZOLIZUMAB
     Indication: Ovarian cancer recurrent
     Dosage: DATE OF LAST DOSE OF ATEZOLIZUMAB PRIOR TO SAE ON 12/JAN/2022
     Route: 041
     Dates: start: 20211216, end: 20220127
  2. BEVACIZUMAB [Suspect]
     Active Substance: BEVACIZUMAB
     Indication: Ovarian cancer recurrent
     Dosage: DATE OF LAST DOSE OF BEVACIZUMAB PRIOR TO SAE WAS 12/JAN/2022
     Route: 042
     Dates: start: 20211216
  3. PACLITAXEL [Suspect]
     Active Substance: PACLITAXEL
     Indication: Ovarian cancer recurrent
     Dosage: ON 20/JAN/2022, RECEIVED LAST DOSE OF PACLITAXEL PRIOR TO AE
     Route: 042
     Dates: start: 20211216

REACTIONS (1)
  - Enterocolitis [Not Recovered/Not Resolved]

NARRATIVE: CASE EVENT DATE: 20220121
